FAERS Safety Report 10381089 (Version 1)
Quarter: 2014Q3

REPORT INFORMATION
  Report Type: Spontaneous
  Country: US (occurrence: None)
  Receive Date: 20140808
  Receipt Date: 20140808
  Transmission Date: 20150326
  Serious: Yes (Hospitalization)
  Sender: FDA-Public Use
  Company Number: AUR-APL-2014-08325

PATIENT
  Age: 47 Year
  Sex: Male

DRUGS (1)
  1. METOPROLOL (METOPROLOL) UNKNOWN, UNKNOWN [Suspect]
     Active Substance: METOPROLOL
     Indication: PRODUCT USED FOR UNKNOWN INDICATION
     Route: 048

REACTIONS (7)
  - Bradycardia [None]
  - Hypotension [None]
  - Cardiac arrest [None]
  - Overdose [None]
  - Loss of consciousness [None]
  - Suicide attempt [None]
  - Coma [None]
